FAERS Safety Report 10869814 (Version 2)
Quarter: 2015Q1

REPORT INFORMATION
  Report Type: Spontaneous
  Country: US (occurrence: None)
  Receive Date: 20150223
  Receipt Date: 20150309
  Transmission Date: 20150721
  Serious: Yes (Other)
  Sender: FDA-Public Use
  Company Number: ADR-2015-00356

PATIENT
  Sex: Female

DRUGS (1)
  1. COMPOUNDED BACLOFEN [Suspect]
     Active Substance: BACLOFEN
     Indication: MUSCLE SPASTICITY

REACTIONS (7)
  - Muscle spasticity [None]
  - Device dislocation [None]
  - Adverse event [None]
  - Anxiety [None]
  - Seizure [None]
  - Musculoskeletal disorder [None]
  - Overdose [None]
